FAERS Safety Report 13462377 (Version 2)
Quarter: 2017Q2

REPORT INFORMATION
  Report Type: Spontaneous
  Country: IT (occurrence: IT)
  Receive Date: 20170420
  Receipt Date: 20170506
  Transmission Date: 20170830
  Serious: Yes (Hospitalization)
  Sender: FDA-Public Use
  Company Number: IT-ABBVIE-17P-083-1949262-00

PATIENT
  Age: 56 Year
  Sex: Female

DRUGS (5)
  1. ZOLOFT [Concomitant]
     Active Substance: SERTRALINE HYDROCHLORIDE
     Indication: PRODUCT USED FOR UNKNOWN INDICATION
  2. BRINTELLIX (VORTIOXETINE HYDROBROMIDE) [Concomitant]
     Indication: PRODUCT USED FOR UNKNOWN INDICATION
  3. OLANZAPINE. [Suspect]
     Active Substance: OLANZAPINE
     Indication: DRUG USE DISORDER
     Route: 048
     Dates: start: 20170202, end: 20170202
  4. DEPAKINE CHRONO [Suspect]
     Active Substance: VALPROATE SODIUM
     Indication: DRUG USE DISORDER
     Dosage: EXTENDED RELEASE
     Route: 048
     Dates: start: 20170202, end: 20170202
  5. LAMICTAL [Suspect]
     Active Substance: LAMOTRIGINE
     Indication: DRUG USE DISORDER
     Route: 048
     Dates: start: 20170202, end: 20170202

REACTIONS (4)
  - Sopor [Unknown]
  - Poisoning [Unknown]
  - Suicidal behaviour [Unknown]
  - Drug use disorder [Unknown]

NARRATIVE: CASE EVENT DATE: 20170202
